FAERS Safety Report 9294245 (Version 5)
Quarter: 2013Q3

REPORT INFORMATION
  Report Type: Report from Study
  Country: CA (occurrence: CA)
  Receive Date: 20130516
  Receipt Date: 20130730
  Transmission Date: 20140515
  Serious: Yes (Death, Hospitalization, Other)
  Sender: FDA-Public Use
  Company Number: CA-ALEXION-A201301045

PATIENT
  Age: 19 Year
  Sex: Female
  Weight: 35 kg

DRUGS (9)
  1. IRBESARTAN [Concomitant]
     Dosage: 150 MG, QD
     Route: 048
  2. PANTOPRAZOLE [Concomitant]
     Dosage: 40 MG, QD
     Route: 048
  3. IRON [Concomitant]
     Dosage: UNK, QDAY
     Route: 048
  4. CALCIUM [Concomitant]
     Dosage: UNK, QDAY
     Route: 048
  5. VITAMIN D [Concomitant]
     Dosage: UNK, QDAY
     Route: 048
  6. SOLIRIS [Suspect]
     Indication: HAEMOLYTIC URAEMIC SYNDROME
     Dosage: 900 MG, QW
     Route: 042
     Dates: start: 20121107, end: 20121128
  7. SOLIRIS [Suspect]
     Dosage: 1200 MG, Q2W
     Route: 042
     Dates: start: 20121205
  8. FOLIC ACID [Concomitant]
     Dosage: 5 MG, QD
     Route: 048
  9. DANAZOL [Concomitant]
     Dosage: 200 MG, QD
     Route: 048

REACTIONS (5)
  - Death [Fatal]
  - Bacterial infection [Not Recovered/Not Resolved]
  - Clostridium difficile infection [Not Recovered/Not Resolved]
  - Sepsis [Not Recovered/Not Resolved]
  - Pneumonia [Not Recovered/Not Resolved]
